FAERS Safety Report 7555591-9 (Version None)
Quarter: 2011Q2

REPORT INFORMATION
  Report Type: 
  Country: None (occurrence: None)
  Receive Date: 20110617
  Receipt Date: 20010322
  Transmission Date: 20111010
  Serious: Yes (Hospitalization)
  Sender: FDA-Public Use
  Company Number: PHEH2001US02728

PATIENT

DRUGS (1)
  1. EXELON [Suspect]
     Indication: DEMENTIA ALZHEIMER'S TYPE
     Dosage: 3 MG, BID
     Route: 048
     Dates: start: 20001212, end: 20010131

REACTIONS (4)
  - HEMIPLEGIA [None]
  - DYSPHAGIA [None]
  - CEREBROVASCULAR ACCIDENT [None]
  - APHASIA [None]
